FAERS Safety Report 8133909-6 (Version None)
Quarter: 2012Q1

REPORT INFORMATION
  Report Type: 
  Country: None (occurrence: None)
  Receive Date: 20120213
  Receipt Date: 20120203
  Transmission Date: 20120608
  Serious: Yes (Other)
  Sender: FDA-Public Use
  Company Number: US-ASTRAZENECA-2011SE37115

PATIENT
  Age: 66 Year
  Sex: Male

DRUGS (3)
  1. NEXIUM [Suspect]
     Route: 048
  2. LYRICA [Concomitant]
  3. LIPITOR [Concomitant]

REACTIONS (7)
  - ROAD TRAFFIC ACCIDENT [None]
  - SPINAL FRACTURE [None]
  - NECK PAIN [None]
  - INAPPROPRIATE SCHEDULE OF DRUG ADMINISTRATION [None]
  - BACK PAIN [None]
  - THERAPEUTIC RESPONSE UNEXPECTED [None]
  - BARRETT'S OESOPHAGUS [None]
